FAERS Safety Report 25378525 (Version 1)
Quarter: 2025Q2

REPORT INFORMATION
  Report Type: Spontaneous
  Country: US (occurrence: None)
  Receive Date: 20250529
  Receipt Date: 20250529
  Transmission Date: 20250717
  Serious: Yes (Hospitalization)
  Sender: FDA-CTU
  Company Number: None

PATIENT
  Sex: Female

DRUGS (3)
  1. SILDENAFIL CITRATE [Suspect]
     Active Substance: SILDENAFIL CITRATE
     Indication: Pulmonary arterial hypertension
     Dosage: FREQUENCY : 3 TIMES A DAY;?
     Route: 048
     Dates: start: 20231014
  2. ENBREL [Suspect]
     Active Substance: ETANERCEPT
     Indication: Rheumatoid arthritis
  3. UPTRAVI [Suspect]
     Active Substance: SELEXIPAG

REACTIONS (11)
  - Diarrhoea [None]
  - Therapy interrupted [None]
  - Chest pain [None]
  - Electrocardiogram abnormal [None]
  - Blood pressure decreased [None]
  - Product dose omission in error [None]
  - Affective disorder [None]
  - Fatigue [None]
  - Peripheral swelling [None]
  - Joint swelling [None]
  - Peripheral swelling [None]
